FAERS Safety Report 4696315-2 (Version None)
Quarter: 2005Q2

REPORT INFORMATION
  Report Type: 
  Country: None (occurrence: None)
  Receive Date: 20050620
  Receipt Date: 20050607
  Transmission Date: 20051028
  Serious: Yes (Other)
  Sender: FDA-Public Use
  Company Number: 2005085781

PATIENT
  Sex: Female

DRUGS (7)
  1. CELEBREX [Suspect]
     Indication: PAIN
     Dosage: ORAL
     Route: 048
  2. BEXTRA [Suspect]
     Indication: BACK PAIN
     Dosage: ORAL
     Route: 048
  3. SYNTHROID [Suspect]
     Indication: AUTOIMMUNE THYROIDITIS
     Dosage: 0.025 MG ORAL
     Route: 048
  4. IBUPROFEN [Concomitant]
  5. PRILOSEC [Concomitant]
  6. LODINE [Concomitant]
  7. TYLENOL W/ CODEINE [Concomitant]

REACTIONS (6)
  - DRUG INEFFECTIVE [None]
  - FATIGUE [None]
  - HYPERTHYROIDISM [None]
  - HYPOTHYROIDISM [None]
  - INFLAMMATION [None]
  - INSOMNIA [None]
